FAERS Safety Report 4742120-8 (Version None)
Quarter: 2005Q3

REPORT INFORMATION
  Report Type: 
  Country: None (occurrence: None)
  Receive Date: 20050808
  Receipt Date: 20050726
  Transmission Date: 20060218
  Serious: Yes (Other)
  Sender: FDA-Public Use
  Company Number: USA050599140

PATIENT
  Sex: Female
  Weight: 102 kg

DRUGS (31)
  1. FORTEO [Suspect]
     Indication: OSTEOPOROSIS
     Dosage: 20 UG DAY
     Dates: start: 20040527
  2. PLAVIX [Concomitant]
  3. PREDNISONE [Concomitant]
  4. VIAGRA [Concomitant]
  5. ATENOLOL [Concomitant]
  6. FUROSEMIDE [Concomitant]
  7. VASOTEC (ENAALPRIL MALEATE) [Concomitant]
  8. NORVASC [Concomitant]
  9. VALIUM [Concomitant]
  10. NEXIUM [Concomitant]
  11. MULTIVITAMINS NOS (MULTIVITAMINS NOS) [Concomitant]
  12. VITAMIN D [Concomitant]
  13. FRAGMIN [Concomitant]
  14. BACLOFEN [Concomitant]
  15. NEURONTIN [Concomitant]
  16. PLAQUENIL (HYDROXYCHLOROGUINE SULFATE) [Concomitant]
  17. CELLCEPT [Concomitant]
  18. CELEBREX [Concomitant]
  19. KLOR-CON [Concomitant]
  20. FOLIC ACID [Concomitant]
  21. ZOLOFT [Concomitant]
  22. MS CONTIN [Concomitant]
  23. MORPHINE SULFATE [Concomitant]
  24. LIPITOR [Concomitant]
  25. TYLENOL (CAPLET) [Concomitant]
  26. CALCIUM CITRATE [Concomitant]
  27. COLACE (DOCUSATE SODIUM) [Concomitant]
  28. METAMUCIL /00091301/ (PSYLLIUM HYDROPHILIC MUCILLOID) [Concomitant]
  29. REFRESH TEARS PLUS (CARMELLOSE SODIUM) [Concomitant]
  30. PANAFIL [Concomitant]
  31. CURASOL (CURASOL) [Concomitant]

REACTIONS (3)
  - CAROTID ARTERY STENOSIS [None]
  - HYPERCHOLESTEROLAEMIA [None]
  - HYPERTENSION [None]
